FAERS Safety Report 10902634 (Version 2)
Quarter: 2015Q1

REPORT INFORMATION
  Report Type: Spontaneous
  Country: GB (occurrence: GB)
  Receive Date: 20150310
  Receipt Date: 20150311
  Transmission Date: 20150721
  Serious: Yes (Life-Threatening, Other)
  Sender: FDA-Public Use
  Company Number: PHHY2015GB024815

PATIENT
  Age: 29 Year
  Sex: Female

DRUGS (2)
  1. PARACETAMOL [Suspect]
     Active Substance: ACETAMINOPHEN
     Indication: PELVIC PAIN
     Dosage: UNK
     Route: 065
  2. COCODAMOL [Suspect]
     Active Substance: ACETAMINOPHEN\CODEINE PHOSPHATE
     Indication: PELVIC PAIN
     Dosage: UNK
     Route: 065

REACTIONS (11)
  - Malaise [Unknown]
  - Liver disorder [Unknown]
  - Exposure during pregnancy [Unknown]
  - Depressed level of consciousness [Unknown]
  - Accidental overdose [Unknown]
  - Fear [Unknown]
  - Asthenopia [Unknown]
  - Premature labour [Unknown]
  - Feeling guilty [Unknown]
  - Consciousness fluctuating [Unknown]
  - Asthenia [Unknown]
